FAERS Safety Report 21706322 (Version 1)
Quarter: 2022Q4

REPORT INFORMATION
  Report Type: Spontaneous
  Country: US (occurrence: US)
  Receive Date: 20221209
  Receipt Date: 20221209
  Transmission Date: 20230112
  Serious: Yes (Other)
  Sender: FDA-Public Use
  Company Number: US-TEVA-2022-US-2834110

PATIENT
  Age: 47 Year
  Sex: Female

DRUGS (1)
  1. HALOPERIDOL [Suspect]
     Active Substance: HALOPERIDOL
     Indication: Psychotic disorder
     Dosage: 50 MG / ML,1 INJECTION PER MONTH
     Route: 065
     Dates: start: 20221103

REACTIONS (5)
  - Hallucination, auditory [Unknown]
  - Hallucination [Unknown]
  - Hypoglycaemia [Unknown]
  - Balance disorder [Unknown]
  - Drug ineffective [Unknown]

NARRATIVE: CASE EVENT DATE: 20221103
